FAERS Safety Report 5680193-9 (Version None)
Quarter: 2008Q1

REPORT INFORMATION
  Report Type: 
  Country: None (occurrence: None)
  Receive Date: 20080326
  Receipt Date: 20080317
  Transmission Date: 20080703
  Serious: Yes (Hospitalization)
  Sender: FDA-Public Use
  Company Number: PHEH2008US02347

PATIENT
  Age: 65 Year
  Sex: Female
  Weight: 82.086 kg

DRUGS (1)
  1. GLEEVEC [Suspect]
     Indication: CHRONIC MYELOID LEUKAEMIA
     Dosage: 400 MG, QD
     Route: 048
     Dates: start: 20051201, end: 20080229

REACTIONS (13)
  - ALANINE AMINOTRANSFERASE INCREASED [None]
  - ASPARTATE AMINOTRANSFERASE INCREASED [None]
  - BILE DUCT OBSTRUCTION [None]
  - BLOOD ALKALINE PHOSPHATASE INCREASED [None]
  - CHROMATURIA [None]
  - COMPUTERISED TOMOGRAM ABNORMAL [None]
  - GASTRITIS [None]
  - JAUNDICE [None]
  - PANCREATIC ENLARGEMENT [None]
  - PANCREATIC NEOPLASM [None]
  - PLATELET COUNT DECREASED [None]
  - TUMOUR MARKER INCREASED [None]
  - WHITE BLOOD CELL COUNT DECREASED [None]
